FAERS Safety Report 11952107 (Version 1)
Quarter: 2016Q1

REPORT INFORMATION
  Report Type: Spontaneous
  Country: AU (occurrence: AU)
  Receive Date: 20160126
  Receipt Date: 20160126
  Transmission Date: 20160526
  Serious: Yes (Death)
  Sender: FDA-Public Use
  Company Number: AU-BAYER-2016-009867

PATIENT
  Age: 25 Year
  Sex: Female

DRUGS (4)
  1. MIDAZOLAM [Concomitant]
     Active Substance: MIDAZOLAM\MIDAZOLAM HYDROCHLORIDE
  2. HEPARIN [Interacting]
     Active Substance: HEPARIN SODIUM
  3. PHENYTOIN. [Concomitant]
     Active Substance: PHENYTOIN
  4. ACETYLSALICYLIC ACID (} 100 MG) [Suspect]
     Active Substance: ASPIRIN

REACTIONS (3)
  - Labelled drug-drug interaction medication error [None]
  - Haemorrhagic stroke [Fatal]
  - Brain herniation [Fatal]
